FAERS Safety Report 4600548-0 (Version None)
Quarter: 2005Q1

REPORT INFORMATION
  Report Type: 
  Country: None (occurrence: None)
  Receive Date: 20050304
  Receipt Date: 20050223
  Transmission Date: 20050727
  Serious: Yes (Death)
  Sender: FDA-Public Use
  Company Number: 2005-02-1504

PATIENT

DRUGS (1)
  1. UNITRON PEG (PEG-INTERFERON ALFA-2B) INJECTABLE [Suspect]
     Dosage: 80 MCG

REACTIONS (1)
  - DEATH [None]
